FAERS Safety Report 21065616 (Version 1)
Quarter: 2022Q3

REPORT INFORMATION
  Report Type: Report from Study
  Country: IT (occurrence: IT)
  Receive Date: 20220711
  Receipt Date: 20220711
  Transmission Date: 20221027
  Serious: Yes (Hospitalization, Other)
  Sender: FDA-Public Use
  Company Number: IT-002147023-NVSC2022IT148974

PATIENT

DRUGS (2)
  1. RUXOLITINIB [Suspect]
     Active Substance: RUXOLITINIB
     Indication: Myelofibrosis
     Dosage: UNK
     Route: 065
  2. ARIXTRA [Concomitant]
     Active Substance: FONDAPARINUX SODIUM
     Indication: Anticoagulant therapy
     Dosage: 5 MG
     Route: 065
     Dates: start: 202103

REACTIONS (5)
  - Ascites [Recovered/Resolved]
  - Pleural effusion [Recovered/Resolved]
  - Haematoma [Recovered/Resolved]
  - Platelet count decreased [Unknown]
  - Splenic thrombosis [Recovered/Resolved]

NARRATIVE: CASE EVENT DATE: 20210315
